FAERS Safety Report 7256246-0 (Version None)
Quarter: 2011Q1

REPORT INFORMATION
  Report Type: 
  Country: None (occurrence: None)
  Receive Date: 20110129
  Receipt Date: 20100503
  Transmission Date: 20110831
  Serious: No
  Sender: FDA-Public Use
  Company Number: US-ABBOTT-10P-163-0630228-00

PATIENT
  Sex: Male
  Weight: 181.6 kg

DRUGS (10)
  1. TRAMADOL HCL [Concomitant]
     Indication: RHEUMATOID ARTHRITIS
  2. GLYPIPRIDE [Concomitant]
     Indication: DIABETES MELLITUS
  3. HUMIRA [Suspect]
     Indication: RHEUMATOID ARTHRITIS
     Dates: start: 20100101
  4. MEDROL [Suspect]
     Indication: RHEUMATOID ARTHRITIS
     Dates: start: 20100101
  5. LISINOPRIL [Concomitant]
     Indication: HYPERTENSION
  6. VOLTAREN [Concomitant]
     Indication: RHEUMATOID ARTHRITIS
  7. SIMVASTATIN [Concomitant]
     Indication: BLOOD CHOLESTEROL INCREASED
  8. PERCOCET [Concomitant]
     Indication: RHEUMATOID ARTHRITIS
  9. METFORMIN HYDROCHLORIDE [Suspect]
     Indication: DIABETES MELLITUS
     Dates: start: 20100101
  10. ARAVA [Concomitant]
     Indication: RHEUMATOID ARTHRITIS

REACTIONS (5)
  - OEDEMA PERIPHERAL [None]
  - BLOOD GLUCOSE INCREASED [None]
  - DRUG EFFECT DELAYED [None]
  - DIARRHOEA [None]
  - WEIGHT DECREASED [None]
